FAERS Safety Report 18737409 (Version 1)
Quarter: 2021Q1

REPORT INFORMATION
  Report Type: Spontaneous
  Country: US (occurrence: US)
  Receive Date: 20210113
  Receipt Date: 20210113
  Transmission Date: 20210419
  Serious: Yes (Hospitalization)
  Sender: FDA-Public Use
  Company Number: US-TEVA-2021-US-1867433

PATIENT
  Age: 2 Year
  Sex: Male

DRUGS (1)
  1. BUPRENORPHINE. [Suspect]
     Active Substance: BUPRENORPHINE
     Indication: ACCIDENTAL EXPOSURE TO PRODUCT
     Route: 048

REACTIONS (10)
  - Tachycardia [Unknown]
  - Gait disturbance [Recovering/Resolving]
  - Miosis [Recovering/Resolving]
  - Pallor [Unknown]
  - Respiratory depression [Recovering/Resolving]
  - Bradypnoea [Unknown]
  - Hyporesponsive to stimuli [Recovering/Resolving]
  - Somnolence [Recovering/Resolving]
  - Toxicity to various agents [Unknown]
  - Accidental exposure to product [Unknown]
